FAERS Safety Report 4703129-3 (Version None)
Quarter: 2005Q2

REPORT INFORMATION
  Report Type: 
  Country: None (occurrence: None)
  Receive Date: 20050629
  Receipt Date: 20050523
  Transmission Date: 20051028
  Serious: Yes (Death, Life-Threatening)
  Sender: FDA-Public Use
  Company Number: JP-GLAXOSMITHKLINE-B0382188A

PATIENT
  Age: 11 Year
  Sex: Male
  Weight: 43 kg

DRUGS (21)
  1. ALKERAN [Suspect]
     Indication: STEM CELL TRANSPLANT
     Route: 042
     Dates: start: 20040822, end: 20040823
  2. IFOSFAMIDE [Suspect]
     Indication: STEM CELL TRANSPLANT
     Dosage: 3.3G PER DAY
     Dates: start: 20040817, end: 20040821
  3. UROMITEXAN [Concomitant]
     Indication: STEM CELL TRANSPLANT
     Dates: start: 20040817, end: 20040821
  4. NEUTROGIN [Concomitant]
     Dates: start: 20040825, end: 20040905
  5. ZOFRAN [Concomitant]
     Route: 042
     Dates: start: 20040816, end: 20040822
  6. GASTER [Concomitant]
     Dates: start: 20040816, end: 20040915
  7. VICCLOX [Concomitant]
     Dates: start: 20040816, end: 20040826
  8. HORIZON [Concomitant]
     Dates: start: 20040822, end: 20040822
  9. DOPAMINE HCL [Concomitant]
     Dates: start: 20040822, end: 20040903
  10. DORMICUM [Concomitant]
     Dates: start: 20040822, end: 20040823
  11. DECADRON [Concomitant]
     Dates: start: 20040822, end: 20040915
  12. LASIX [Concomitant]
     Dates: start: 20040822, end: 20040915
  13. CITOSOL [Concomitant]
     Dates: start: 20040823, end: 20040825
  14. FLUMARIN [Concomitant]
     Dates: start: 20040825, end: 20040827
  15. PANTOL [Concomitant]
     Dates: start: 20040825, end: 20040830
  16. MANNITOL [Concomitant]
     Dates: start: 20040826, end: 20040906
  17. MAXIPIME [Concomitant]
     Dates: start: 20040827, end: 20040903
  18. MINOMYCIN [Concomitant]
     Dates: start: 20040830, end: 20040903
  19. FUNGUARD [Concomitant]
     Dates: start: 20040831, end: 20040904
  20. AMIKACIN SULFATE [Concomitant]
     Dates: start: 20040904, end: 20040906
  21. MEROPEN [Concomitant]
     Dates: start: 20040904, end: 20040908

REACTIONS (1)
  - CEREBRAL HAEMORRHAGE [None]
